FAERS Safety Report 5574923-4 (Version None)
Quarter: 2007Q4

REPORT INFORMATION
  Report Type: 
  Country: None (occurrence: None)
  Receive Date: 20071227
  Receipt Date: 20071218
  Transmission Date: 20080405
  Serious: Yes (Other)
  Sender: FDA-Public Use
  Company Number: A0662990A

PATIENT
  Age: 71 Year
  Sex: Male
  Weight: 116 kg

DRUGS (15)
  1. AVANDIA [Suspect]
     Dosage: 4MG PER DAY
     Route: 048
     Dates: start: 20070301, end: 20070401
  2. GLIPIZIDE [Concomitant]
  3. LOVASTATIN [Concomitant]
  4. CELEXA [Concomitant]
  5. OMEPRAZOLE [Concomitant]
  6. LISINOPRIL [Concomitant]
  7. CYCLOBENZAPRINE HCL [Concomitant]
  8. LORATADINE [Concomitant]
  9. METOPROLOL [Concomitant]
     Dosage: 100MG PER DAY
  10. TERAZOSIN HCL [Concomitant]
     Dosage: 2MG PER DAY
  11. ETODOLAC [Concomitant]
     Dosage: 1200MG PER DAY
  12. GLUCOSAMINE + CHONDROITIN [Concomitant]
  13. CENTRUM SILVER [Concomitant]
  14. GARLIC [Concomitant]
  15. LEXAPRO [Concomitant]
     Dosage: 10MG PER DAY

REACTIONS (9)
  - ANXIETY [None]
  - CARDIAC DISORDER [None]
  - CATHETERISATION CARDIAC [None]
  - CHEST DISCOMFORT [None]
  - CHEST PAIN [None]
  - OEDEMA [None]
  - OEDEMA PERIPHERAL [None]
  - PAIN [None]
  - VISION BLURRED [None]
